FAERS Safety Report 10653338 (Version 1)
Quarter: 2014Q4

REPORT INFORMATION
  Report Type: Report from Study
  Country: CO (occurrence: CO)
  Receive Date: 20141215
  Receipt Date: 20141215
  Transmission Date: 20150529
  Serious: Yes (Death, Hospitalization, Disabling)
  Sender: FDA-Public Use
  Company Number: CO-AMGEN-COLSL2014097118

PATIENT
  Age: 54 Year
  Sex: Male

DRUGS (1)
  1. NEULASTA [Suspect]
     Active Substance: PEGFILGRASTIM
     Indication: FEBRILE NEUTROPENIA
     Dosage: UNK UNK, EVERY 21 DAYS
     Route: 042
     Dates: start: 20140720, end: 20140917

REACTIONS (1)
  - Pulmonary pain [Fatal]

NARRATIVE: CASE EVENT DATE: 20140915
